FAERS Safety Report 4388900-2 (Version None)
Quarter: 2004Q2

REPORT INFORMATION
  Report Type: 
  Country: None (occurrence: None)
  Receive Date: 20040628
  Receipt Date: 20040614
  Transmission Date: 20050107
  Serious: Yes (Death, Other)
  Sender: FDA-Public Use
  Company Number: LV-2004-026967

PATIENT
  Age: 70 Year
  Sex: Female

DRUGS (12)
  1. ULTRAVIST 300 [Suspect]
     Indication: COMPUTERISED TOMOGRAM
     Dosage: 100 ML, INTRAVENOUS
     Route: 042
     Dates: start: 20040420, end: 20040420
  2. TRIFAS () [Suspect]
     Dosage: 5 MG, 1 DOSE
     Dates: start: 20040415, end: 20040420
  3. PHENAZEPAM (PHENAZEPAM) [Suspect]
  4. AMBROLAN [Concomitant]
  5. OMEPROL (OMEPRAZOLE) [Concomitant]
  6. VEROSPIRON [Concomitant]
  7. HYPOTHIAZID [Concomitant]
  8. THEOPEC [Concomitant]
  9. AUGMENTIN / SCH/ (CLAVULANATE POTASSIUM) [Concomitant]
  10. GELOFUSINE (POLYGELINE) [Concomitant]
  11. DIGOXIN [Concomitant]
  12. ABSINTHI [Concomitant]

REACTIONS (7)
  - ANAPHYLACTIC SHOCK [None]
  - CARDIO-RESPIRATORY ARREST [None]
  - CARDIOPULMONARY FAILURE [None]
  - COR PULMONALE [None]
  - HYPOXIC ENCEPHALOPATHY [None]
  - LOBAR PNEUMONIA [None]
  - POISONING [None]
